FAERS Safety Report 5038251-8 (Version None)
Quarter: 2006Q2

REPORT INFORMATION
  Report Type: 
  Country: None (occurrence: None)
  Receive Date: 20060601
  Receipt Date: 20060125
  Transmission Date: 20061013
  Serious: No
  Sender: FDA-Public Use
  Company Number: 2006PV007607

PATIENT
  Age: 62 Year
  Sex: Male
  Weight: 108.8633 kg

DRUGS (6)
  1. BYETTA [Suspect]
     Indication: DIABETES MELLITUS NON-INSULIN-DEPENDENT
     Dosage: SEE IMAGE
     Route: 058
     Dates: start: 20051101, end: 20051201
  2. BYETTA [Suspect]
     Indication: DIABETES MELLITUS NON-INSULIN-DEPENDENT
     Dosage: SEE IMAGE
     Route: 058
     Dates: start: 20060101
  3. LANTUS [Concomitant]
  4. GLUCOPHAGE XL [Concomitant]
  5. ACTOS /USA/ [Concomitant]
  6. AMARYL [Concomitant]

REACTIONS (5)
  - ABDOMINAL DISTENSION [None]
  - DRUG INEFFECTIVE [None]
  - FLATULENCE [None]
  - INJECTION SITE PAIN [None]
  - WEIGHT DECREASED [None]
